FAERS Safety Report 8374917-X (Version None)
Quarter: 2012Q2

REPORT INFORMATION
  Report Type: 
  Country: None (occurrence: None)
  Receive Date: 20120521
  Receipt Date: 20120516
  Transmission Date: 20120825
  Serious: Yes (Hospitalization)
  Sender: FDA-Public Use
  Company Number: US-AMGEN-USASP2012026378

PATIENT
  Age: 72 Year
  Sex: Female

DRUGS (2)
  1. ENBREL [Suspect]
     Indication: RHEUMATOID ARTHRITIS
     Dosage: 50 MG, QWK
     Dates: start: 20120301, end: 20120427
  2. TREXALL [Concomitant]
     Dosage: 1 MG, UNK

REACTIONS (15)
  - HAEMOPTYSIS [None]
  - FUNGAL INFECTION [None]
  - DEEP VEIN THROMBOSIS [None]
  - FEELING JITTERY [None]
  - UPPER RESPIRATORY TRACT INFECTION [None]
  - PULMONARY EMBOLISM [None]
  - ASTHMA [None]
  - FATIGUE [None]
  - SJOGREN'S SYNDROME [None]
  - STOMATITIS [None]
  - OXYGEN SATURATION DECREASED [None]
  - WEIGHT DECREASED [None]
  - MYALGIA [None]
  - MUSCLE SPASMS [None]
  - INTERNATIONAL NORMALISED RATIO INCREASED [None]
